FAERS Safety Report 9894809 (Version 1)
Quarter: 2014Q1

REPORT INFORMATION
  Report Type: Spontaneous
  Country: US (occurrence: US)
  Receive Date: 20140213
  Receipt Date: 20140213
  Transmission Date: 20141002
  Serious: No
  Sender: FDA-Public Use
  Company Number: US-BAXTER-2014BAX006059

PATIENT
  Sex: Female

DRUGS (2)
  1. GAMMAGARD LIQUID [Suspect]
     Indication: PRIMARY IMMUNODEFICIENCY SYNDROME
     Route: 042
  2. GAMMAGARD LIQUID [Suspect]
     Route: 042

REACTIONS (3)
  - Poor venous access [Not Recovered/Not Resolved]
  - Infusion site extravasation [Recovered/Resolved]
  - Underdose [Recovered/Resolved]
